FAERS Safety Report 4416476-X (Version None)
Quarter: 2004Q2

REPORT INFORMATION
  Report Type: 
  Country: None (occurrence: None)
  Receive Date: 20040628
  Receipt Date: 20030624
  Transmission Date: 20050107
  Serious: Yes (Other)
  Sender: FDA-Public Use
  Company Number: 341128

PATIENT

DRUGS (1)
  1. CELLCEPT [Suspect]
     Indication: LIVER TRANSPLANT

REACTIONS (1)
  - RENAL FAILURE [None]
